FAERS Safety Report 16316119 (Version 1)
Quarter: 2019Q2

REPORT INFORMATION
  Report Type: Spontaneous
  Country: US (occurrence: US)
  Receive Date: 20190515
  Receipt Date: 20190515
  Transmission Date: 20190711
  Serious: No
  Sender: FDA-Public Use
  Company Number: US-SA-2019SA127270

PATIENT
  Age: 58 Year
  Sex: Male

DRUGS (8)
  1. LORATADINE. [Concomitant]
     Active Substance: LORATADINE
  2. MULTIVITAMINUM [Concomitant]
  3. VITAMIN D3 [Concomitant]
     Active Substance: CHOLECALCIFEROL
  4. DUPIXENT [Suspect]
     Active Substance: DUPILUMAB
     Indication: DERMATITIS ATOPIC
     Dosage: 1 DF, QOW
     Route: 058
     Dates: start: 20190405
  5. COMBIGAN [Concomitant]
     Active Substance: BRIMONIDINE TARTRATE\TIMOLOL MALEATE
  6. PREDNISONE. [Concomitant]
     Active Substance: PREDNISONE
  7. TRIAMCINOLONE ACETONIDE. [Concomitant]
     Active Substance: TRIAMCINOLONE ACETONIDE
  8. LUMIGAN [Concomitant]
     Active Substance: BIMATOPROST

REACTIONS (3)
  - Lacrimation increased [Unknown]
  - Eye pruritus [Not Recovered/Not Resolved]
  - Ocular hyperaemia [Unknown]

NARRATIVE: CASE EVENT DATE: 20190405
